FAERS Safety Report 12568014 (Version 1)
Quarter: 2016Q3

REPORT INFORMATION
  Report Type: Spontaneous
  Country: US (occurrence: US)
  Receive Date: 20160718
  Receipt Date: 20160718
  Transmission Date: 20161109
  Serious: No
  Sender: FDA-Public Use
  Company Number: US-ASTELLAS-2016US013728

PATIENT
  Age: 84 Year
  Sex: Female

DRUGS (7)
  1. MYRBETRIQ [Suspect]
     Active Substance: MIRABEGRON
     Indication: NOCTURIA
     Route: 065
     Dates: start: 2014, end: 201603
  2. MYRBETRIQ [Suspect]
     Active Substance: MIRABEGRON
     Dosage: 25 MG, TWICE DAILY (2 OF 25 MG)
     Route: 048
     Dates: start: 20160404
  3. LEVOTHYROXINE. [Concomitant]
     Active Substance: LEVOTHYROXINE
     Indication: PRODUCT USED FOR UNKNOWN INDICATION
     Dosage: UNK UNK, UNKNOWN FREQ.
     Route: 065
  4. LOSARTAN. [Concomitant]
     Active Substance: LOSARTAN
     Indication: PRODUCT USED FOR UNKNOWN INDICATION
     Dosage: UNK UNK, UNKNOWN FREQ.
     Route: 065
  5. ATENOLOL. [Concomitant]
     Active Substance: ATENOLOL
     Indication: PRODUCT USED FOR UNKNOWN INDICATION
     Dosage: UNK UNK, UNKNOWN FREQ.
     Route: 065
  6. MYRBETRIQ [Suspect]
     Active Substance: MIRABEGRON
     Route: 048
     Dates: start: 201604
  7. ALLOPURINOL. [Concomitant]
     Active Substance: ALLOPURINOL
     Indication: PRODUCT USED FOR UNKNOWN INDICATION
     Dosage: UNK UNK, UNKNOWN FREQ.
     Route: 065

REACTIONS (2)
  - Inappropriate schedule of drug administration [Unknown]
  - Drug effect incomplete [Recovering/Resolving]

NARRATIVE: CASE EVENT DATE: 20160404
